FAERS Safety Report 8828375 (Version 1)
Quarter: 2012Q4

REPORT INFORMATION
  Report Type: 
  Country: PR (occurrence: PR)
  Receive Date: 20121005
  Receipt Date: 20121005
  Transmission Date: 20130627
  Serious: Yes (Death, Hospitalization, Other)
  Sender: FDA-Public Use
  Company Number: PR-ROCHE-770880

PATIENT

DRUGS (7)
  1. MABTHERA [Suspect]
     Indication: NON-HODGKIN^S LYMPHOMA
     Dosage: ON DAY 1
     Route: 042
  2. CYCLOPHOSPHAMIDE/CYCLOPHOSPHAMIDE [Suspect]
     Indication: NON-HODGKIN^S LYMPHOMA
     Dosage: ON DAY 2
     Route: 042
  3. DOXORUBICIN/DOXORUBICIN HYDROCHLORIDE [Suspect]
     Indication: NON-HODGKIN^S LYMPHOMA
     Dosage: ON DAY 2
     Route: 042
  4. VINCRISTINE/VINCRISTINE [Suspect]
     Indication: NON-HODGKIN^S LYMPHOMA
     Dosage: ON DAY 2,maximum dose 2.0 mg/m 2
     Route: 042
  5. PREDNISOLONE [Suspect]
     Indication: NON-HODGKIN^S LYMPHOMA
     Dosage: ON DAY 2
     Route: 048
  6. GMCSF [Concomitant]
     Indication: NON-HODGKIN^S LYMPHOMA
     Dosage: on days 6, 8, 10 and 13
     Route: 065
  7. FILGRASTIM [Concomitant]
     Indication: NON-HODGKIN^S LYMPHOMA
     Dosage: DRUG: PEGYLATED FILGRASTIM,on day 3
     Route: 058

REACTIONS (5)
  - Death [Fatal]
  - Febrile neutropenia [Unknown]
  - Infection [Unknown]
  - Leukopenia [Unknown]
  - Anaemia [Unknown]
